FAERS Safety Report 7772656-7 (Version None)
Quarter: 2011Q3

REPORT INFORMATION
  Report Type: 
  Country: None (occurrence: None)
  Receive Date: 20110922
  Receipt Date: 20110516
  Transmission Date: 20111222
  Serious: No
  Sender: FDA-Public Use
  Company Number: US-ASTRAZENECA-2011SE29767

PATIENT
  Age: 27 Year
  Sex: Male
  Weight: 99.8 kg

DRUGS (4)
  1. SEROQUEL [Suspect]
     Indication: BIPOLAR DISORDER
     Route: 048
     Dates: start: 20100101
  2. PROZAC [Concomitant]
  3. KLONOPIN [Concomitant]
  4. LITHIUM [Concomitant]

REACTIONS (4)
  - THERAPEUTIC RESPONSE UNEXPECTED [None]
  - DISTURBANCE IN ATTENTION [None]
  - WRONG TECHNIQUE IN DRUG USAGE PROCESS [None]
  - SOMNOLENCE [None]
